FAERS Safety Report 23627865 (Version 1)
Quarter: 2024Q1

REPORT INFORMATION
  Report Type: Spontaneous
  Country: CN (occurrence: CN)
  Receive Date: 20240313
  Receipt Date: 20240313
  Transmission Date: 20240410
  Serious: Yes (Other)
  Sender: FDA-Public Use
  Company Number: CN-BRACCO-2024CN01008

PATIENT
  Age: 51 Year
  Sex: Male

DRUGS (4)
  1. SULPHUR HEXAFLUORIDE [Suspect]
     Active Substance: SULFUR HEXAFLUORIDE
     Indication: Computerised tomogram
     Dosage: 59 MG, ST
     Route: 042
     Dates: start: 20240301, end: 20240301
  2. SULPHUR HEXAFLUORIDE [Suspect]
     Active Substance: SULFUR HEXAFLUORIDE
     Indication: Computerised tomogram
     Dosage: 59 MG, ST
     Route: 042
     Dates: start: 20240301, end: 20240301
  3. SULPHUR HEXAFLUORIDE [Suspect]
     Active Substance: SULFUR HEXAFLUORIDE
     Indication: Computerised tomogram
     Dosage: 59 MG, ST
     Route: 042
     Dates: start: 20240301, end: 20240301
  4. SODIUM CHLORIDE [Concomitant]
     Active Substance: SODIUM CHLORIDE
     Indication: Vehicle solution use
     Dosage: 5 ML, ST
     Route: 042
     Dates: start: 20240301, end: 20240301

REACTIONS (4)
  - Chest discomfort [Recovering/Resolving]
  - Cold sweat [Recovering/Resolving]
  - Chills [Recovering/Resolving]
  - Hyperpyrexia [Recovering/Resolving]

NARRATIVE: CASE EVENT DATE: 20240301
